FAERS Safety Report 7208435-9 (Version None)
Quarter: 2011Q1

REPORT INFORMATION
  Report Type: 
  Country: None (occurrence: None)
  Receive Date: 20110104
  Receipt Date: 20101222
  Transmission Date: 20110831
  Serious: Yes (Hospitalization)
  Sender: FDA-Public Use
  Company Number: PHHY2010JP88164

PATIENT

DRUGS (2)
  1. RASILEZ [Suspect]
     Indication: HYPERTENSION
     Dosage: 150 MG, UNK
     Route: 048
     Dates: start: 20101101
  2. RASILEZ [Suspect]
     Dosage: 300 MG, UNK
     Route: 048

REACTIONS (3)
  - ATRIOVENTRICULAR BLOCK [None]
  - DIZZINESS [None]
  - CHEST DISCOMFORT [None]
